FAERS Safety Report 8892803 (Version 1)
Quarter: 2012Q4

REPORT INFORMATION
  Report Type: Spontaneous
  Country: US (occurrence: None)
  Receive Date: 20121106
  Receipt Date: 20121106
  Transmission Date: 20130627
  Serious: Yes (Life-Threatening, Other)
  Sender: FDA-Public Use
  Company Number: None

PATIENT
  Age: 33 Year
  Sex: Female
  Weight: 65 kg

DRUGS (1)
  1. AMETHIA [Suspect]
     Dates: start: 20120806, end: 20121030

REACTIONS (2)
  - Vaginal haemorrhage [None]
  - Menorrhagia [None]
